FAERS Safety Report 17900468 (Version 1)
Quarter: 2020Q2

REPORT INFORMATION
  Report Type: Spontaneous
  Country: US (occurrence: US)
  Receive Date: 20200615
  Receipt Date: 20200615
  Transmission Date: 20200714
  Serious: Yes (Other)
  Sender: FDA-Public Use
  Company Number: None

PATIENT
  Sex: Female

DRUGS (2)
  1. EPINEPHRINE AUTO INJ [Suspect]
     Active Substance: EPINEPHRINE
     Indication: PHENYLKETONURIA
     Route: 058
     Dates: start: 202004
  2. PALYNZIG [Concomitant]

REACTIONS (1)
  - Hypertension [None]
